FAERS Safety Report 26179850 (Version 1)
Quarter: 2025Q4

REPORT INFORMATION
  Report Type: Spontaneous
  Country: CN (occurrence: CN)
  Receive Date: 20251219
  Receipt Date: 20251219
  Transmission Date: 20260118
  Serious: Yes (Other)
  Sender: ROCHE
  Company Number: CN-ROCHE-10000457920

PATIENT
  Age: 8 Year
  Sex: Female

DRUGS (3)
  1. BALOXAVIR MARBOXIL [Suspect]
     Active Substance: BALOXAVIR MARBOXIL
     Indication: Nasopharyngitis
     Route: 048
     Dates: start: 20251208, end: 20251208
  2. CARBOCYSTEINE [Concomitant]
     Active Substance: CARBOCYSTEINE
     Indication: Influenza
     Route: 048
     Dates: start: 20251208, end: 20251208
  3. Fei Li Ke Mixture [Concomitant]
     Indication: Cough
     Route: 048
     Dates: start: 20251208, end: 20251208

REACTIONS (1)
  - Dermatitis allergic [Recovering/Resolving]

NARRATIVE: CASE EVENT DATE: 20251208
